FAERS Safety Report 5020359-4 (Version None)
Quarter: 2006Q2

REPORT INFORMATION
  Report Type: 
  Country: None (occurrence: None)
  Receive Date: 20060602
  Receipt Date: 20060511
  Transmission Date: 20061013
  Serious: Yes (Other)
  Sender: FDA-Public Use
  Company Number: A-CH2006-12279

PATIENT
  Age: 68 Year
  Sex: Female
  Weight: 99 kg

DRUGS (4)
  1. TRACLEER [Suspect]
     Indication: PULMONARY HYPERTENSION
     Dosage: 125 MG, BID; ORAL, 62.5 MG, BID; ORAL
     Route: 048
     Dates: end: 20060419
  2. TRACLEER [Suspect]
     Indication: PULMONARY HYPERTENSION
     Dosage: 125 MG, BID; ORAL, 62.5 MG, BID; ORAL
     Route: 048
     Dates: start: 20060420, end: 20060427
  3. FUROSEMIDE [Concomitant]
  4. LIPITOR [Concomitant]

REACTIONS (3)
  - ALANINE AMINOTRANSFERASE INCREASED [None]
  - ASPARTATE AMINOTRANSFERASE INCREASED [None]
  - LIVER FUNCTION TEST ABNORMAL [None]
